FAERS Safety Report 18762960 (Version 1)
Quarter: 2021Q1

REPORT INFORMATION
  Report Type: Spontaneous
  Country: US (occurrence: US)
  Receive Date: 20210120
  Receipt Date: 20210120
  Transmission Date: 20210419
  Serious: Yes (Hospitalization, Other)
  Sender: FDA-Public Use
  Company Number: NVSC2021US007990

PATIENT
  Sex: Male

DRUGS (1)
  1. MEKINIST [Suspect]
     Active Substance: TRAMETINIB DIMETHYL SULFOXIDE
     Indication: MALIGNANT CONNECTIVE TISSUE NEOPLASM
     Dosage: 2 MG, QD
     Route: 048
     Dates: start: 20200212

REACTIONS (4)
  - Constipation [Unknown]
  - Cellulitis [Unknown]
  - Infection [Unknown]
  - Product use in unapproved indication [Unknown]
